FAERS Safety Report 8588179-1 (Version None)
Quarter: 2012Q3

REPORT INFORMATION
  Report Type: 
  Country: None (occurrence: None)
  Receive Date: 20120731
  Receipt Date: 20120719
  Transmission Date: 20120928
  Serious: Yes (Other)
  Sender: FDA-Public Use
  Company Number: 2012P1050407

PATIENT
  Age: 30 Year
  Sex: Male

DRUGS (3)
  1. DIPHENHYDRAMINE HCL [Suspect]
     Indication: CONVULSION
     Dosage: 50 MG;X1;IV
     Route: 042
     Dates: start: 20120710, end: 20120710
  2. DIPHENHYDRAMINE HCL [Suspect]
     Indication: HYPERSENSITIVITY
     Dosage: 50 MG;X1;IV
     Route: 042
     Dates: start: 20120710, end: 20120710
  3. DIPHENHYDRAMINE HCL [Suspect]
     Indication: URTICARIA
     Dosage: 50 MG;X1;IV
     Route: 042
     Dates: start: 20120710, end: 20120710

REACTIONS (4)
  - PRODUCT QUALITY ISSUE [None]
  - COUGH [None]
  - DYSPHORIA [None]
  - CONVULSION [None]
